FAERS Safety Report 4902360-1 (Version None)
Quarter: 2006Q1

REPORT INFORMATION
  Report Type: 
  Country: None (occurrence: None)
  Receive Date: 20060203
  Receipt Date: 20060203
  Transmission Date: 20060701
  Serious: Yes (Other)
  Sender: FDA-Public Use
  Company Number: None

PATIENT
  Age: 8 Year
  Sex: Female

DRUGS (1)
  1. TRIAMINIC VAPOR PATCH [Suspect]

REACTIONS (3)
  - APPLICATION SITE BURN [None]
  - BURNS SECOND DEGREE [None]
  - PHARMACEUTICAL PRODUCT COMPLAINT [None]
